FAERS Safety Report 19581394 (Version 1)
Quarter: 2021Q3

REPORT INFORMATION
  Report Type: Spontaneous
  Country: US (occurrence: US)
  Receive Date: 20210719
  Receipt Date: 20210719
  Transmission Date: 20211014
  Serious: No
  Sender: FDA-Public Use
  Company Number: None

PATIENT

DRUGS (1)
  1. NOREPINEPHRINE 4 MG IN 250 ML 0.9% SODIUM CHLORIDE [Suspect]
     Active Substance: NOREPINEPHRINE
     Indication: SHOCK
     Dosage: ?          OTHER FREQUENCY:CONTINUOUS;?
     Route: 041
     Dates: start: 20210716, end: 20210716

REACTIONS (3)
  - Accidental exposure to product [None]
  - Blood pressure increased [None]
  - Product physical issue [None]

NARRATIVE: CASE EVENT DATE: 20210716
